FAERS Safety Report 9076323 (Version 1)
Quarter: 2013Q1

REPORT INFORMATION
  Report Type: Report from Study
  Country: US (occurrence: US)
  Receive Date: 20130129
  Receipt Date: 20130129
  Transmission Date: 20140127
  Serious: No
  Sender: FDA-Public Use
  Company Number: US-ABBOTT-12P-163-0947657-00

PATIENT
  Age: 41 Year
  Sex: Female
  Weight: 57.2 kg

DRUGS (7)
  1. HUMIRA 40 MG/0.8 ML PEN [Suspect]
     Indication: RHEUMATOID ARTHRITIS
     Route: 058
     Dates: start: 20120531
  2. ASACOL [Concomitant]
     Indication: CROHN^S DISEASE
  3. CLONAZEPAM [Concomitant]
     Indication: ANXIETY
  4. DEPOPROVERA [Concomitant]
     Indication: CONTRACEPTION
  5. VICODIN [Concomitant]
     Indication: PAIN
  6. AMITRIPTYLINE [Concomitant]
     Indication: SLEEP DISORDER THERAPY
  7. PROZAC [Concomitant]
     Indication: DEPRESSION

REACTIONS (5)
  - Pruritus generalised [Recovering/Resolving]
  - Headache [Recovered/Resolved]
  - Lymphadenopathy [Recovering/Resolving]
  - Rash macular [Recovered/Resolved]
  - Pharyngitis streptococcal [Not Recovered/Not Resolved]
